FAERS Safety Report 6152656-3 (Version None)
Quarter: 2009Q2

REPORT INFORMATION
  Report Type: 
  Country: None (occurrence: None)
  Receive Date: 20090413
  Receipt Date: 20090330
  Transmission Date: 20091009
  Serious: Yes (Death, Hospitalization)
  Sender: FDA-Public Use
  Company Number: GB-ROCHE-611984

PATIENT
  Sex: Female
  Weight: 67 kg

DRUGS (3)
  1. CAPECITABINE [Suspect]
     Indication: COLON CANCER
     Dosage: THERAPY DISCONTINUED, CYCLE NO: 1. GIVEN DAYS 1 - 14 EVERY 3 WEEKS
     Route: 048
     Dates: start: 20090115, end: 20090128
  2. BEVACIZUMAB [Suspect]
     Indication: COLON CANCER
     Dosage: THERAPY DISCONTINUED. CYCLE NO: 1.
     Route: 042
     Dates: start: 20090115, end: 20090115
  3. OMEPRAZOLE [Concomitant]
     Indication: PROPHYLAXIS
     Route: 048
     Dates: start: 20090116

REACTIONS (5)
  - DIARRHOEA [None]
  - DYSURIA [None]
  - MUCOSAL INFLAMMATION [None]
  - NEUTROPENIC SEPSIS [None]
  - RASH [None]
